FAERS Safety Report 7022970-8 (Version None)
Quarter: 2010Q3

REPORT INFORMATION
  Report Type: 
  Country: None (occurrence: None)
  Receive Date: 20100930
  Receipt Date: 20100920
  Transmission Date: 20110219
  Serious: Yes (Other)
  Sender: FDA-Public Use
  Company Number: US-PFIZER INC-2010119582

PATIENT
  Sex: Female

DRUGS (15)
  1. XALATAN [Suspect]
     Indication: GLAUCOMA
     Dosage: ONE DROP BOTH EYES, DAILY AT BEDTIME
     Dates: start: 20090101
  2. XALATAN [Suspect]
     Indication: INTRAOCULAR PRESSURE INCREASED
  3. FORADIL [Concomitant]
     Dosage: 12 UG, 2X/DAY
     Route: 048
  4. SPIRIVA [Concomitant]
     Dosage: 30 UNK, 1X/DAY
     Route: 048
  5. METOPROLOL [Concomitant]
     Dosage: 25 MG, 1X/DAY
  6. PRAVASTATIN [Concomitant]
     Dosage: 80 MG, 1X/DAY
  7. TRICOR [Concomitant]
     Dosage: 145 MG, 1X/DAY
  8. ACETYLSALICYLIC ACID [Concomitant]
     Dosage: 162 MG, 1X/DAY
  9. FISH OIL [Concomitant]
     Dosage: UNK
  10. OMEPRAZOLE [Concomitant]
     Indication: GASTRIC DISORDER
     Dosage: 20 MG, 1X/DAY
  11. BUPROPION HYDROCHLORIDE [Concomitant]
     Dosage: 150 MG, 2X/DAY
  12. CITALOPRAM [Concomitant]
     Dosage: 40 MG, 1X/DAY
  13. VICODIN [Concomitant]
     Dosage: UNK, ONCE TO TWICE DAILY
  14. LEVOTHYROXINE [Concomitant]
     Dosage: 0.100 MG, 1X/DAY
  15. TALWIN [Concomitant]
     Dosage: UNK, DAILY

REACTIONS (2)
  - DIABETES MELLITUS [None]
  - INTRAOCULAR PRESSURE INCREASED [None]
